FAERS Safety Report 24381300 (Version 1)
Quarter: 2024Q4

REPORT INFORMATION
  Report Type: Report from Study
  Country: US (occurrence: US)
  Receive Date: 20241001
  Receipt Date: 20241001
  Transmission Date: 20250114
  Serious: Yes (Hospitalization)
  Sender: ABBVIE
  Company Number: US-ABBVIE-5938848

PATIENT
  Age: 70 Year
  Sex: Male

DRUGS (1)
  1. HUMIRA [Suspect]
     Active Substance: ADALIMUMAB
     Indication: Ankylosing spondylitis
     Dosage: DOSAGE: 40 MG/ML CITRATE FREE
     Route: 058
     Dates: start: 2009, end: 20240802

REACTIONS (9)
  - Pneumonia [Recovered/Resolved]
  - Chronic obstructive pulmonary disease [Recovering/Resolving]
  - Influenza [Recovering/Resolving]
  - Pneumonia fungal [Recovering/Resolving]
  - Immunosuppression [Recovering/Resolving]
  - Unevaluable event [Unknown]
  - Swelling [Unknown]
  - Pain [Unknown]
  - Dyspnoea [Recovering/Resolving]

NARRATIVE: CASE EVENT DATE: 20240208
